FAERS Safety Report 23344015 (Version 1)
Quarter: 2023Q4

REPORT INFORMATION
  Report Type: Spontaneous
  Country: CN (occurrence: CN)
  Receive Date: 20231227
  Receipt Date: 20231227
  Transmission Date: 20240109
  Serious: Yes (Hospitalization, Other)
  Sender: FDA-Public Use
  Company Number: CN-GLAXOSMITHKLINE-CN2023APC177522

PATIENT

DRUGS (1)
  1. ADEFOVIR DIPIVOXIL [Suspect]
     Active Substance: ADEFOVIR DIPIVOXIL
     Indication: Chronic hepatitis B
     Dosage: 10 MG, QD
     Route: 065

REACTIONS (11)
  - Renal tubular acidosis [Unknown]
  - Fanconi syndrome [Unknown]
  - Hypophosphataemic osteomalacia [Unknown]
  - Arthralgia [Unknown]
  - Musculoskeletal chest pain [Unknown]
  - Back pain [Unknown]
  - Fall [Unknown]
  - Bone pain [Recovering/Resolving]
  - Muscular weakness [Unknown]
  - Condition aggravated [Unknown]
  - Gait disturbance [Recovered/Resolved]
